FAERS Safety Report 25251708 (Version 1)
Quarter: 2025Q2

REPORT INFORMATION
  Report Type: Spontaneous
  Country: CA (occurrence: CA)
  Receive Date: 20250429
  Receipt Date: 20250429
  Transmission Date: 20250716
  Serious: Yes (Other)
  Sender: PFIZER
  Company Number: CA-PFIZER INC-202500089178

PATIENT
  Age: 77 Year
  Sex: Female

DRUGS (1)
  1. VYNDAQEL [Suspect]
     Active Substance: TAFAMIDIS MEGLUMINE
     Indication: Cardiac amyloidosis
     Dosage: 80 MG, 1X/DAY
     Route: 048
     Dates: start: 20230705

REACTIONS (5)
  - Angina pectoris [Unknown]
  - Coronary ostial stenosis [Unknown]
  - Dizziness [Unknown]
  - Atrial enlargement [Unknown]
  - Mitral valve calcification [Unknown]

NARRATIVE: CASE EVENT DATE: 20250101
